FAERS Safety Report 12337128 (Version 1)
Quarter: 2016Q2

REPORT INFORMATION
  Report Type: Spontaneous
  Country: GB (occurrence: GB)
  Receive Date: 20160505
  Receipt Date: 20160505
  Transmission Date: 20160815
  Serious: Yes (Hospitalization)
  Sender: FDA-Public Use
  Company Number: PHFR2016GB003744

PATIENT
  Age: 15 Year
  Sex: Male
  Weight: 86 kg

DRUGS (2)
  1. ONDANSETRON [Suspect]
     Active Substance: ONDANSETRON
     Indication: ANAESTHETIC PREMEDICATION
     Dosage: 4 MG, QD
     Route: 042
     Dates: start: 20160421, end: 20160421
  2. PROPOFOL. [Suspect]
     Active Substance: PROPOFOL
     Indication: INDUCTION OF ANAESTHESIA
     Dosage: 220 MG, QD
     Route: 042
     Dates: start: 20160421, end: 20160421

REACTIONS (1)
  - Myoclonus [Recovering/Resolving]

NARRATIVE: CASE EVENT DATE: 20160421
